FAERS Safety Report 18412948 (Version 2)
Quarter: 2020Q4

REPORT INFORMATION
  Report Type: Spontaneous
  Country: PK (occurrence: PK)
  Receive Date: 20201021
  Receipt Date: 20201109
  Transmission Date: 20210114
  Serious: Yes (Other)
  Sender: FDA-Public Use
  Company Number: PK-ALLERGAN-2040004US

PATIENT
  Sex: Male
  Weight: 105 kg

DRUGS (5)
  1. QUSEL [Concomitant]
     Indication: INSOMNIA
     Dosage: 25 MG, QD
     Route: 065
     Dates: start: 20200825
  2. ESCITALOPRAM OXALATE - BP [Suspect]
     Active Substance: ESCITALOPRAM OXALATE
     Indication: OBSESSIVE-COMPULSIVE DISORDER
  3. ESCITALOPRAM OXALATE - BP [Suspect]
     Active Substance: ESCITALOPRAM OXALATE
     Indication: AGORAPHOBIA
     Dosage: 20 MG, QD
     Route: 048
     Dates: start: 20200825
  4. QUSEL [Concomitant]
     Indication: OBSESSIVE-COMPULSIVE DISORDER
  5. TENORMIN [Concomitant]
     Active Substance: ATENOLOL
     Indication: HYPERTENSION
     Dosage: 50 MG, QD
     Route: 065
     Dates: start: 20200825

REACTIONS (6)
  - Head discomfort [Recovering/Resolving]
  - Heart rate increased [Recovering/Resolving]
  - Yawning [Recovering/Resolving]
  - Palpitations [Recovering/Resolving]
  - Gastrointestinal hypermotility [Recovering/Resolving]
  - Libido decreased [Recovering/Resolving]

NARRATIVE: CASE EVENT DATE: 202009
